FAERS Safety Report 18566152 (Version 1)
Quarter: 2020Q4

REPORT INFORMATION
  Report Type: Spontaneous
  Country: US (occurrence: US)
  Receive Date: 20201201
  Receipt Date: 20201201
  Transmission Date: 20210114
  Serious: Yes (Other)
  Sender: FDA-Public Use
  Company Number: US-BAYER-2020-255905

PATIENT
  Age: 78 Year
  Sex: Male

DRUGS (4)
  1. LINZESS [Concomitant]
     Active Substance: LINACLOTIDE
  2. METFORMIN [Concomitant]
     Active Substance: METFORMIN HYDROCHLORIDE
  3. MIRALAX [Suspect]
     Active Substance: POLYETHYLENE GLYCOL 3350
     Indication: NEUROPATHY PERIPHERAL
     Dosage: 1 DF, QD
     Route: 048
     Dates: start: 2018
  4. PRECOSE [Concomitant]
     Active Substance: ACARBOSE

REACTIONS (5)
  - Drug effective for unapproved indication [Unknown]
  - Renal impairment [Unknown]
  - Bladder disorder [None]
  - Incorrect product administration duration [Unknown]
  - Flatulence [None]
